FAERS Safety Report 6913223-4 (Version None)
Quarter: 2010Q3

REPORT INFORMATION
  Report Type: 
  Country: None (occurrence: None)
  Receive Date: 20100809
  Receipt Date: 20100729
  Transmission Date: 20110219
  Serious: Yes (Hospitalization)
  Sender: FDA-Public Use
  Company Number: US-BIOGENIDEC-2010BI010850

PATIENT
  Age: 73 Year
  Sex: Female

DRUGS (1)
  1. TYSABRI [Suspect]
     Indication: MULTIPLE SCLEROSIS
     Route: 042
     Dates: start: 20081204, end: 20100121

REACTIONS (5)
  - BLOOD TEST ABNORMAL [None]
  - CONSTIPATION [None]
  - DYSPHAGIA [None]
  - HAEMOGLOBIN DECREASED [None]
  - HAEMORRHAGE [None]
